FAERS Safety Report 7712437-3 (Version None)
Quarter: 2011Q3

REPORT INFORMATION
  Report Type: 
  Country: None (occurrence: None)
  Receive Date: 20110823
  Receipt Date: 20110808
  Transmission Date: 20111222
  Serious: Yes (Other)
  Sender: FDA-Public Use
  Company Number: 7075497

PATIENT
  Age: 46 Year
  Sex: Male

DRUGS (6)
  1. CACIT D3 (LEKOVIT CA) (CHOLECALCIFEROL, CALCIUM) [Concomitant]
     Indication: PRODUCT USED FOR UNKNOWN INDICATION
  2. ESOMEPRAZOLE MAGNESIUM [Suspect]
     Indication: PRODUCT USED FOR UNKNOWN INDICATION
  3. LEVOTHYROXINE SODIUM [Suspect]
     Indication: PRODUCT USED FOR UNKNOWN INDICATION
     Dosage: ORAL
     Route: 048
  4. DESLORATADINE [Suspect]
     Indication: PRODUCT USED FOR UNKNOWN INDICATION
  5. PREVISCAN (PENTOXIFYLLINE) (FLUINDIONE) [Suspect]
     Indication: PRODUCT USED FOR UNKNOWN INDICATION
  6. VANDETANIB [Suspect]
     Indication: THYROID CANCER
     Dosage: (300 MG)
     Dates: start: 20110411

REACTIONS (1)
  - ELECTROCARDIOGRAM QT PROLONGED [None]
